FAERS Safety Report 6242672-5 (Version None)
Quarter: 2009Q2

REPORT INFORMATION
  Report Type: 
  Country: None (occurrence: None)
  Receive Date: 20090624
  Receipt Date: 20090610
  Transmission Date: 20091009
  Serious: Yes (Hospitalization, Other)
  Sender: FDA-Public Use
  Company Number: PHHY2009GB23603

PATIENT
  Sex: Female

DRUGS (1)
  1. CLOZARIL [Suspect]
     Indication: SCHIZOPHRENIA
     Dosage: 350 MG, QD
     Route: 048
     Dates: start: 20090512

REACTIONS (5)
  - CHEST PAIN [None]
  - CYANOSIS [None]
  - GALLBLADDER DISORDER [None]
  - IMPAIRED SELF-CARE [None]
  - TACHYCARDIA [None]
